FAERS Safety Report 15017586 (Version 1)
Quarter: 2018Q2

REPORT INFORMATION
  Report Type: Report from Study
  Country: FR (occurrence: FR)
  Receive Date: 20180615
  Receipt Date: 20180615
  Transmission Date: 20180711
  Serious: Yes (Life-Threatening, Hospitalization)
  Sender: FDA-Public Use
  Company Number: FR-PFIZER INC-2018240855

PATIENT
  Age: 67 Year
  Sex: Male
  Weight: 71 kg

DRUGS (14)
  1. AFLIBERCEPT [Suspect]
     Active Substance: AFLIBERCEPT
     Dosage: 142 MG, CYCLIC
     Route: 041
     Dates: start: 20150331, end: 20150331
  2. SODIUM HYDROGEN CARBONATE [Concomitant]
     Active Substance: SODIUM BICARBONATE
     Indication: PROPHYLAXIS
     Dates: start: 20150127
  3. FLUOROURACIL. [Suspect]
     Active Substance: FLUOROURACIL
     Dosage: 801 MG, CYCLIC
     Route: 040
     Dates: start: 20150113, end: 20150113
  4. IRINOTECAN HCL [Suspect]
     Active Substance: IRINOTECAN HYDROCHLORIDE
     Dosage: 344 MG, CYCLIC
     Route: 041
     Dates: start: 20150331, end: 20150331
  5. CALCIUM FOLINATE [Suspect]
     Active Substance: LEUCOVORIN CALCIUM
     Indication: COLORECTAL CANCER METASTATIC
     Dosage: 400 MG, CYCLIC
     Route: 041
     Dates: start: 20150113, end: 20150113
  6. AVODART [Concomitant]
     Active Substance: DUTASTERIDE
     Dates: start: 201504
  7. FLUOROURACIL. [Suspect]
     Active Substance: FLUOROURACIL
     Indication: COLORECTAL CANCER METASTATIC
     Dosage: 765 MG, CYCLIC
     Route: 040
     Dates: start: 20150331, end: 20150331
  8. FLUOROURACIL. [Suspect]
     Active Substance: FLUOROURACIL
     Dosage: 4591 MG, CYCLIC
     Route: 041
     Dates: start: 20150331, end: 20150331
  9. IRINOTECAN HCL [Suspect]
     Active Substance: IRINOTECAN HYDROCHLORIDE
     Indication: COLORECTAL CANCER METASTATIC
     Dosage: 360 MG, CYCLIC
     Route: 041
     Dates: start: 20150113, end: 20150113
  10. LEXOMIL [Concomitant]
     Active Substance: BROMAZEPAM
     Indication: PROPHYLAXIS
     Dates: start: 20150410, end: 20150429
  11. FLUOROURACIL. [Suspect]
     Active Substance: FLUOROURACIL
     Dosage: 4801 MG, CYCLIC
     Route: 041
     Dates: start: 20150113, end: 20150113
  12. XATRAL [Concomitant]
     Active Substance: ALFUZOSIN
     Dates: start: 20150410, end: 20150413
  13. CALCIUM FOLINATE [Suspect]
     Active Substance: LEUCOVORIN CALCIUM
     Dosage: 383 MG, CYCLIC
     Route: 041
     Dates: start: 20150331, end: 20150331
  14. AFLIBERCEPT [Suspect]
     Active Substance: AFLIBERCEPT
     Indication: COLORECTAL CANCER METASTATIC
     Dosage: 316 MG, CYCLIC
     Route: 041
     Dates: start: 20150113, end: 20150113

REACTIONS (8)
  - Febrile bone marrow aplasia [Recovered/Resolved]
  - Dehydration [Recovered/Resolved]
  - Pain [Recovered/Resolved]
  - Pulmonary sepsis [Recovered/Resolved]
  - Hypernatraemia [Recovered/Resolved]
  - Benign prostatic hyperplasia [Not Recovered/Not Resolved]
  - Accidental overdose [Recovered/Resolved]
  - Urinary retention [Recovered/Resolved]

NARRATIVE: CASE EVENT DATE: 201504
